FAERS Safety Report 10607578 (Version 1)
Quarter: 2014Q4

REPORT INFORMATION
  Report Type: Spontaneous
  Country: IL (occurrence: IL)
  Receive Date: 20141125
  Receipt Date: 20141125
  Transmission Date: 20150529
  Serious: Yes (Hospitalization)
  Sender: FDA-Public Use
  Company Number: IL-BRISTOL-MYERS SQUIBB COMPANY-21611918

PATIENT
  Age: 72 Year
  Sex: Female
  Weight: 110 kg

DRUGS (11)
  1. CLOPIDOGREL BISULFATE. [Concomitant]
     Active Substance: CLOPIDOGREL BISULFATE
  2. CYMBALTA [Concomitant]
     Active Substance: DULOXETINE HYDROCHLORIDE
  3. VABEN [Concomitant]
     Active Substance: OXAZEPAM
  4. HUMALOG [Concomitant]
     Active Substance: INSULIN LISPRO
  5. ROSUVASTATIN [Concomitant]
     Active Substance: ROSUVASTATIN
  6. BYDUREON [Suspect]
     Active Substance: EXENATIDE
     Indication: TYPE 2 DIABETES MELLITUS
     Dosage: ONGOING
  7. METFORMIN [Concomitant]
     Active Substance: METFORMIN HYDROCHLORIDE
  8. AMLODIPINE [Concomitant]
     Active Substance: AMLODIPINE BESYLATE
  9. ASPIRIN. [Concomitant]
     Active Substance: ASPIRIN
  10. RAMIPRIL. [Concomitant]
     Active Substance: RAMIPRIL
  11. RAMIPRIL + HCTZ [Concomitant]

REACTIONS (1)
  - Acute myocardial infarction [Recovering/Resolving]
